FAERS Safety Report 11776563 (Version 1)
Quarter: 2015Q4

REPORT INFORMATION
  Report Type: Report from Study
  Country: IL (occurrence: IL)
  Receive Date: 20151125
  Receipt Date: 20151125
  Transmission Date: 20160304
  Serious: Yes (Other)
  Sender: FDA-Public Use
  Company Number: PHHY2015IL137159

PATIENT
  Sex: Female
  Weight: 48 kg

DRUGS (2)
  1. GILENYA [Suspect]
     Active Substance: FINGOLIMOD HYDROCHLORIDE
     Dosage: 0.5 MG, QD
     Route: 048
     Dates: start: 20151008
  2. GILENYA [Suspect]
     Active Substance: FINGOLIMOD HYDROCHLORIDE
     Indication: MULTIPLE SCLEROSIS
     Dosage: 0.5 MG, QD
     Route: 048
     Dates: start: 20140217, end: 20141030

REACTIONS (4)
  - Glucose tolerance impaired in pregnancy [Recovered/Resolved]
  - Multiple sclerosis relapse [Unknown]
  - Polyhydramnios [Recovered/Resolved]
  - Maternal exposure during pregnancy [Unknown]
